FAERS Safety Report 12923289 (Version 1)
Quarter: 2016Q4

REPORT INFORMATION
  Report Type: Spontaneous
  Country: DK (occurrence: DK)
  Receive Date: 20161109
  Receipt Date: 20161109
  Transmission Date: 20170207
  Serious: Yes (Hospitalization)
  Sender: FDA-Public Use
  Company Number: DK-009507513-1611DNK001277

PATIENT
  Age: 54 Year
  Sex: Female

DRUGS (1)
  1. NASONEX [Suspect]
     Active Substance: MOMETASONE FUROATE
     Indication: SINUSITIS
     Dosage: UNK
     Route: 045
     Dates: start: 20141113, end: 201502

REACTIONS (7)
  - Nasal septum perforation [Recovered/Resolved]
  - Nasal mucosal disorder [Unknown]
  - Nasal disorder [Recovered/Resolved]
  - Nasal septal operation [Recovered/Resolved]
  - Nasal crusting [Recovered/Resolved]
  - Nasal inflammation [Unknown]
  - Dyspnoea [Recovered/Resolved]

NARRATIVE: CASE EVENT DATE: 2015
